FAERS Safety Report 13651426 (Version 5)
Quarter: 2017Q4

REPORT INFORMATION
  Report Type: Report from Study
  Country: US (occurrence: US)
  Receive Date: 20170614
  Receipt Date: 20171011
  Transmission Date: 20180320
  Serious: No
  Sender: FDA-Public Use
  Company Number: US-AMGEN-USASL2017089240

PATIENT
  Age: 32 Year
  Sex: Female

DRUGS (2)
  1. LYRICA [Suspect]
     Active Substance: PREGABALIN
     Indication: PRODUCT USED FOR UNKNOWN INDICATION
     Dosage: UNK
     Route: 065
     Dates: end: 20170615
  2. ENBREL [Suspect]
     Active Substance: ETANERCEPT
     Indication: RHEUMATOID ARTHRITIS
     Dosage: 50 MG, QWK
     Route: 065

REACTIONS (10)
  - Oropharyngeal pain [Unknown]
  - Injection site erythema [Unknown]
  - Scar [Unknown]
  - Injection site pain [Unknown]
  - Injection site pruritus [Unknown]
  - Alopecia [Unknown]
  - Wrong technique in product usage process [Unknown]
  - Injection site bruising [Unknown]
  - Feeling abnormal [Unknown]
  - Injection site swelling [Unknown]

NARRATIVE: CASE EVENT DATE: 201706
